FAERS Safety Report 5078454-X (Version None)
Quarter: 2006Q3

REPORT INFORMATION
  Report Type: 
  Country: None (occurrence: None)
  Receive Date: 20060811
  Receipt Date: 20060703
  Transmission Date: 20061208
  Serious: Yes (Hospitalization)
  Sender: FDA-Public Use
  Company Number: JP-NOVOPROD-254707

PATIENT
  Age: 67 Year
  Sex: Male
  Weight: 59 kg

DRUGS (33)
  1. NOVORAPID CHU FLEXPEN [Suspect]
     Indication: INSULIN-REQUIRING TYPE II DIABETES MELLITUS
     Dosage: UP TO 52 IU, QD
     Route: 058
     Dates: start: 20060325, end: 20060531
  2. NOVOLIN N [Suspect]
     Indication: INSULIN-REQUIRING TYPE II DIABETES MELLITUS
     Dosage: UP TO 24 IU, QD
     Route: 058
     Dates: start: 20060325, end: 20060402
  3. HUMALOG                            /01293501/ [Suspect]
     Indication: INSULIN-REQUIRING TYPE II DIABETES MELLITUS
     Dosage: UP TO 52 IU, QD
     Route: 058
     Dates: start: 20060510, end: 20060518
  4. AMLODIN [Concomitant]
     Indication: HYPERTENSION
     Dosage: 10 MG, QD
     Route: 048
     Dates: end: 20060328
  5. TENORMIN [Concomitant]
     Indication: HYPERTENSION
     Dosage: 100 MG, QD
     Route: 048
     Dates: end: 20060329
  6. BLOPRESS [Concomitant]
     Indication: HYPERTENSION
     Dosage: UP TO 12 MG, QD
     Route: 048
  7. FRANDOL [Concomitant]
     Indication: HYPERTENSION
     Dosage: 40 MG, QD
     Route: 048
     Dates: end: 20060525
  8. PERSANTIN-L [Concomitant]
     Indication: NEPHROTIC SYNDROME
     Dosage: 300 MG, QD
     Route: 048
     Dates: end: 20060507
  9. ADONA [Concomitant]
     Indication: DIABETIC RETINOPATHY
     Dosage: 90 MG, QD
     Route: 048
  10. PROMOTIN CHEMIPHAR [Concomitant]
     Indication: DIABETIC RETINOPATHY
     Dosage: 75 MG, QD
     Route: 048
  11. LASIX                              /00032601/ [Concomitant]
     Indication: RENAL FAILURE CHRONIC
     Dosage: 360 MG, QD
     Route: 042
     Dates: start: 20060324, end: 20060427
  12. LASIX                              /00032601/ [Concomitant]
     Dosage: 320 MG, QD
     Route: 048
     Dates: start: 20060428, end: 20060525
  13. ADALAT [Concomitant]
     Indication: HYPERTENSION
     Dosage: UP TO 60 MG, QD
     Route: 048
     Dates: start: 20060328, end: 20060605
  14. LOCHOL                             /01224502/ [Concomitant]
     Indication: HYPERCHOLESTEROLAEMIA
     Dosage: 20 MG, QD
     Route: 048
     Dates: start: 20060328
  15. ZESTRIL [Concomitant]
     Indication: HYPERTENSION
     Dosage: 10 MG, QD
     Route: 048
     Dates: start: 20060329, end: 20060607
  16. ALDOMET                            /00000101/ [Concomitant]
     Indication: HYPERTENSION
     Dosage: UP TO 750 MG, QD
     Route: 048
     Dates: start: 20060405, end: 20060530
  17. ALDACTONE                          /00006201/ [Concomitant]
     Indication: HYPERTENSION
     Dosage: 50 MG, QD
     Route: 048
     Dates: start: 20060404, end: 20060525
  18. EPOGEN [Concomitant]
     Indication: NEPHROGENIC ANAEMIA
     Dosage: 6000 IU, 2 WEEKS
     Route: 058
     Dates: start: 20060420
  19. CARNACULIN                         /00088101/ [Concomitant]
     Indication: DIABETIC RETINOPATHY
     Dosage: 75 MG, QD
     Route: 048
     Dates: start: 20060422
  20. GLUCOBAY [Concomitant]
     Indication: INSULIN-REQUIRING TYPE II DIABETES MELLITUS
     Dosage: UP TO 150 MG, QD
     Route: 048
     Dates: start: 20060605, end: 20060623
  21. ROCALTROL [Concomitant]
     Dosage: .25 UNK, QD
     Route: 048
     Dates: start: 20060607
  22. ALLOPURINOL [Concomitant]
     Indication: HYPERURICAEMIA
     Dosage: 100 MG, QD
     Route: 048
     Dates: start: 20060607
  23. GASCON [Concomitant]
     Indication: ABDOMINAL DISTENSION
     Dosage: UP TO 120 MG, QD
     Dates: start: 20060622
  24. BASEN [Concomitant]
     Indication: INSULIN-REQUIRING TYPE II DIABETES MELLITUS
     Dosage: .9 MG, QD
     Route: 048
     Dates: start: 20060624
  25. CALCIUM CARBONATE [Concomitant]
     Dosage: UP TO 2.5 G, QD
     Route: 048
     Dates: start: 20060613
  26. GASTER [Concomitant]
     Indication: STOMACH DISCOMFORT
     Dosage: 10 MG, QD
     Route: 048
     Dates: start: 20060704
  27. 8-HOUR BAYER [Concomitant]
     Indication: ANTIPLATELET THERAPY
     Dosage: 100 MG, QD
     Dates: start: 20060515
  28. BANAN [Concomitant]
     Indication: CYSTITIS
     Dosage: 100 MG, QD
     Route: 048
     Dates: start: 20060529, end: 20060601
  29. RISUMIC [Concomitant]
     Indication: ORTHOSTATIC HYPOTENSION
     Dosage: 10 MG, QD
     Route: 048
     Dates: start: 20060623
  30. NOVOLIN R [Concomitant]
     Indication: INSULIN-REQUIRING TYPE II DIABETES MELLITUS
     Dosage: 32 IU, QD
     Route: 058
     Dates: end: 20060325
  31. PURSENNID                          /00142207/ [Concomitant]
     Indication: CONSTIPATION
     Dosage: 12 MG, QD
     Route: 048
     Dates: start: 20060408
  32. ESPO [Concomitant]
     Indication: NEPHROGENIC ANAEMIA
     Dosage: 1500 IU, QD
     Route: 042
     Dates: start: 20060613
  33. NOVOLIN R [Concomitant]
     Indication: INSULIN-REQUIRING TYPE II DIABETES MELLITUS
     Dosage: 42 IU, QD
     Route: 058
     Dates: start: 20060601

REACTIONS (2)
  - ANTI-INSULIN ANTIBODY INCREASED [None]
  - BLOOD GLUCOSE FLUCTUATION [None]
